FAERS Safety Report 8204066-2 (Version None)
Quarter: 2012Q1

REPORT INFORMATION
  Report Type: 
  Country: None (occurrence: None)
  Receive Date: 20120313
  Receipt Date: 20120305
  Transmission Date: 20120608
  Serious: No
  Sender: FDA-Public Use
  Company Number: US-PFIZER INC-2012060744

PATIENT
  Sex: Female
  Weight: 47 kg

DRUGS (2)
  1. NORGESTREL AND ETHINYL ESTRADIOL [Suspect]
     Indication: OFF LABEL USE
     Dosage: UNK
     Dates: start: 20120101
  2. NORGESTREL AND ETHINYL ESTRADIOL [Suspect]
     Indication: MENORRHAGIA

REACTIONS (3)
  - ACNE [None]
  - PRODUCT QUALITY ISSUE [None]
  - DRUG INEFFECTIVE FOR UNAPPROVED INDICATION [None]
